FAERS Safety Report 8003534-6 (Version None)
Quarter: 2011Q4

REPORT INFORMATION
  Report Type: 
  Country: None (occurrence: None)
  Receive Date: 20111222
  Receipt Date: 20111212
  Transmission Date: 20120403
  Serious: Yes (Other)
  Sender: FDA-Public Use
  Company Number: US-ABBOTT-11P-163-0882950-00

PATIENT
  Sex: Female

DRUGS (9)
  1. PRE-NATAL MULTI-VITAMINS [Concomitant]
     Indication: VITAMIN SUPPLEMENTATION
  2. SYNTHROID [Suspect]
     Indication: THYROID CANCER
     Dates: start: 20111001
  3. VITAMIN D [Concomitant]
     Indication: PRODUCT USED FOR UNKNOWN INDICATION
     Dosage: 100.000
  4. SYNTHROID [Suspect]
     Indication: THYROID CANCER
  5. XOPENEX [Concomitant]
     Indication: PRODUCT USED FOR UNKNOWN INDICATION
  6. SYNTHROID [Suspect]
     Indication: THYROIDECTOMY
     Dosage: DAILY, EXCEPT ON THE 112MCG DAYS
     Dates: start: 20111001
  7. SYNTHROID [Suspect]
     Indication: THYROIDECTOMY
     Dates: start: 20101101, end: 20111001
  8. ALBUTEROL [Concomitant]
     Indication: ASTHMA
  9. ASPIRIN [Concomitant]
     Indication: PRODUCT USED FOR UNKNOWN INDICATION

REACTIONS (5)
  - CHEST PAIN [None]
  - ATRIAL FIBRILLATION [None]
  - DYSPNOEA [None]
  - BLOOD THYROID STIMULATING HORMONE DECREASED [None]
  - OVERDOSE [None]
